FAERS Safety Report 7293227-5 (Version None)
Quarter: 2011Q1

REPORT INFORMATION
  Report Type: 
  Country: None (occurrence: None)
  Receive Date: 20110210
  Receipt Date: 20110210
  Transmission Date: 20110831
  Serious: Yes (Death)
  Sender: FDA-Public Use
  Company Number: None

PATIENT
  Age: 70 Year
  Sex: Male
  Weight: 90 kg

DRUGS (2)
  1. RITUXAN [Suspect]
     Indication: HAIRY CELL LEUKAEMIA
     Dosage: 780 MG IV
     Route: 042
     Dates: start: 20110203, end: 20110203
  2. RITUXAN [Suspect]

REACTIONS (8)
  - PYREXIA [None]
  - HYPOTENSION [None]
  - BACK PAIN [None]
  - LEUKOPENIA [None]
  - CHILLS [None]
  - FLUSHING [None]
  - CYTOKINE RELEASE SYNDROME [None]
  - INFUSION RELATED REACTION [None]
